FAERS Safety Report 4732297-2 (Version None)
Quarter: 2005Q3

REPORT INFORMATION
  Report Type: 
  Country: None (occurrence: None)
  Receive Date: 20050726
  Receipt Date: 20050407
  Transmission Date: 20060218
  Serious: Yes (Life-Threatening)
  Sender: FDA-Public Use
  Company Number: 05SPA0100

PATIENT
  Age: 52 Year
  Sex: Male
  Weight: 82 kg

DRUGS (2)
  1. AGGRASTAT [Suspect]
     Indication: ISCHAEMIC CARDIOMYOPATHY
     Dosage: 0.25 MG/ML, 50 ML QD
     Dates: start: 20050207, end: 20050208
  2. HEPARIN (HEPARIN SODIUM) (INJECTION) [Concomitant]

REACTIONS (1)
  - THROMBOCYTOPENIA [None]
